FAERS Safety Report 5520487-0 (Version None)
Quarter: 2007Q4

REPORT INFORMATION
  Report Type: 
  Country: None (occurrence: None)
  Receive Date: 20071119
  Receipt Date: 20071107
  Transmission Date: 20080405
  Serious: Yes (Death)
  Sender: FDA-Public Use
  Company Number: JP-ELI_LILLY_AND_COMPANY-JP200711002071

PATIENT
  Sex: Male

DRUGS (7)
  1. CEFACLOR [Suspect]
     Indication: TOOTHACHE
     Dosage: 750 MG, DAILY (1/D)
     Route: 048
     Dates: start: 20060504, end: 20060508
  2. TELESMIN [Concomitant]
     Indication: SCHIZOPHRENIA
     Dosage: 1200 MG, DAILY (1/D)
     Route: 048
     Dates: start: 20060422, end: 20060508
  3. TELESMIN [Concomitant]
     Dosage: 400 MG, DAILY (1/D)
     Route: 048
     Dates: start: 20060501, end: 20060508
  4. SERENACE [Concomitant]
     Indication: SCHIZOPHRENIA
     Dosage: 9 MG, DAILY (1/D)
     Route: 048
     Dates: start: 20060422, end: 20060510
  5. RISPERDAL [Concomitant]
     Indication: SCHIZOPHRENIA
     Dosage: 6 ML, DAILY (1/D)
     Route: 048
     Dates: start: 20060422, end: 20060514
  6. LOXONIN [Concomitant]
     Indication: TOOTHACHE
     Dosage: 120 MG, DAILY (1/D)
     Route: 048
     Dates: start: 20060429, end: 20060511
  7. CRAVIT [Concomitant]
     Indication: TOOTHACHE
     Dosage: 300 MG, DAILY (1/D)
     Route: 048
     Dates: start: 20060505, end: 20060514

REACTIONS (1)
  - TOXIC EPIDERMAL NECROLYSIS [None]
